FAERS Safety Report 25920112 (Version 1)
Quarter: 2025Q4

REPORT INFORMATION
  Report Type: Spontaneous
  Country: US (occurrence: None)
  Receive Date: 20251014
  Receipt Date: 20251014
  Transmission Date: 20260117
  Serious: Yes (Other)
  Sender: FDA-CTU
  Company Number: None

PATIENT
  Age: 45 Year

DRUGS (15)
  1. MYCOPHENOLIC ACID [Suspect]
     Active Substance: MYCOPHENOLIC ACID
     Indication: Renal transplant
     Dosage: FREQUENCY : TWICE A DAY;?
     Route: 048
     Dates: start: 20200609
  2. ASPIRIN 81 MG EC LOW DOSE TABLETS [Concomitant]
  3. BUPROPION [Concomitant]
     Active Substance: BUPROPION
  4. CLOPIDOGREL 75MC TABLETS [Concomitant]
  5. FERROUS SULFATE 325MG (5GR) TABS [Concomitant]
  6. FISH OIL 1000MG CAPSULES [Concomitant]
  7. FLUOXETINE HYDROCHLORIDE [Concomitant]
     Active Substance: FLUOXETINE HYDROCHLORIDE
  8. HYDRALAZINE 25MG TABLETS(ORANGE) [Concomitant]
  9. METOPROLOL SUCCINATE [Concomitant]
     Active Substance: METOPROLOL SUCCINATE
  10. MULTIVITAMIN ADULTS 50+ TABLETS [Concomitant]
  11. MYCOPHENOLIC ACID [Concomitant]
     Active Substance: MYCOPHENOLIC ACID
  12. NULOJIX 250MG INJ, 1 VIAL [Concomitant]
  13. ZEPBOUND 10MG/0.5ML INJ (4 PF PENS) [Concomitant]
  14. LOSARTAN [Concomitant]
     Active Substance: LOSARTAN
  15. VITAMIN D 1,000IU SOFTGELS [Concomitant]

REACTIONS (2)
  - Dizziness [None]
  - Weight decreased [None]

NARRATIVE: CASE EVENT DATE: 20250915
